FAERS Safety Report 25272662 (Version 3)
Quarter: 2025Q4

REPORT INFORMATION
  Report Type: Spontaneous
  Country: CA (occurrence: CA)
  Receive Date: 20250506
  Receipt Date: 20251103
  Transmission Date: 20260118
  Serious: Yes (Other)
  Sender: CELLTRION
  Company Number: CA-PFIZER INC-202500046680

PATIENT

DRUGS (2)
  1. INFLIXIMAB [Suspect]
     Active Substance: INFLIXIMAB
     Indication: Ankylosing spondylitis
     Dosage: 5.0 MG/KG
     Route: 042
  2. INFLECTRA [Suspect]
     Active Substance: INFLIXIMAB-DYYB
     Indication: Ankylosing spondylitis
     Dosage: 5 MG/KG, WEEK 0, WEEK, 2, WEEK 6 INDUCTION, THEN EVERY 4 WEEKS
     Route: 042
     Dates: start: 20250318

REACTIONS (3)
  - Dental caries [Recovered/Resolved]
  - Oral infection [Recovered/Resolved]
  - Off label use [Recovered/Resolved]
